FAERS Safety Report 17338879 (Version 5)
Quarter: 2021Q4

REPORT INFORMATION
  Report Type: Report from Study
  Country: ES (occurrence: ES)
  Receive Date: 20200129
  Receipt Date: 20211122
  Transmission Date: 20220303
  Serious: Yes (Hospitalization)
  Sender: FDA-Public Use
  Company Number: ES-GLAXOSMITHKLINE-ES2020TSO013641

PATIENT
  Age: 76 Year
  Sex: Female

DRUGS (25)
  1. NIRAPARIB [Suspect]
     Active Substance: NIRAPARIB
     Indication: Ovarian cancer
     Dosage: 200 MG, QD
     Route: 048
     Dates: start: 20191202
  2. NIRAPARIB [Suspect]
     Active Substance: NIRAPARIB
     Dosage: 100 MG, QD
     Route: 048
     Dates: start: 20191230
  3. COBIMETINIB [Suspect]
     Active Substance: COBIMETINIB
     Indication: Ovarian cancer
     Dosage: 60 MG, Z (1-21 OF EACH 28-DAY)
     Route: 048
     Dates: start: 20191202
  4. COBIMETINIB [Suspect]
     Active Substance: COBIMETINIB
     Dosage: 40 MG
     Route: 048
     Dates: start: 20191230
  5. ATEZOLIZUMAB [Suspect]
     Active Substance: ATEZOLIZUMAB
     Indication: Ovarian cancer
     Dosage: 840 MG, Z (ON DAYS 1 AND 15 (+/-3 DAYS) OF EACH 28-DAY CYCLE)
     Route: 042
     Dates: start: 20191202, end: 20191202
  6. ATEZOLIZUMAB [Suspect]
     Active Substance: ATEZOLIZUMAB
     Dosage: 840 MG, Z (1 AND 15 (+/-3 DAYS) OF EACH 28-DAY
     Route: 042
     Dates: start: 20191230, end: 20191230
  7. OMEPRAZOLE [Suspect]
     Active Substance: OMEPRAZOLE
     Indication: Product used for unknown indication
     Dosage: 20 MG, QD
     Route: 042
     Dates: start: 20191213
  8. OMEPRAZOLE [Suspect]
     Active Substance: OMEPRAZOLE
     Dosage: 20 MG, QD
     Route: 048
     Dates: start: 20191223
  9. HYDROCHLOROTHIAZIDE [Suspect]
     Active Substance: HYDROCHLOROTHIAZIDE
     Indication: Product used for unknown indication
  10. BETAMETHASONE DIPROPIONATE [Suspect]
     Active Substance: BETAMETHASONE DIPROPIONATE
     Indication: Dermatitis acneiform
     Dosage: 0.5 MG, QD
     Route: 061
     Dates: start: 20191213, end: 20191219
  11. FLUTICASONE PROPIONATE [Suspect]
     Active Substance: FLUTICASONE PROPIONATE
     Indication: Dermatitis acneiform
     Dosage: 0.5 MG, BID
     Route: 061
     Dates: start: 20191223
  12. DEXAMETHASONE [Concomitant]
     Active Substance: DEXAMETHASONE
     Dosage: 4 MG, QD
     Route: 048
     Dates: start: 20200111
  13. DOXYCYCLINE [Concomitant]
     Active Substance: DOXYCYCLINE
     Indication: Dermatitis acneiform
     Dosage: 100 MG, QD
     Route: 048
     Dates: start: 20191213, end: 20191223
  14. LEVOTHYROXINE SODIUM [Concomitant]
     Active Substance: LEVOTHYROXINE SODIUM
     Indication: Hypothyroidism
     Dosage: 75 MG, QD
     Route: 048
     Dates: start: 2009
  15. HALOPERIDOL [Concomitant]
     Active Substance: HALOPERIDOL
     Dosage: 2 MG, QD
     Route: 048
     Dates: start: 20200111
  16. LOPERAMIDE [Concomitant]
     Active Substance: LOPERAMIDE
     Dosage: 20 MG, QD
     Route: 048
     Dates: start: 20191230, end: 20200103
  17. MAGNOGENE [Concomitant]
     Dosage: 1 DF, QD
     Route: 048
     Dates: start: 201904
  18. NOLOTIL [Concomitant]
     Indication: Gastrointestinal toxicity
     Dosage: 2 G, TID
     Route: 042
     Dates: start: 20191209
  19. HYDROCHLOROTHIAZIDE\OLMESARTAN MEDOXOMIL [Concomitant]
     Active Substance: HYDROCHLOROTHIAZIDE\OLMESARTAN MEDOXOMIL
     Indication: Hypertension
     Dosage: 40 MG, QD
     Route: 048
     Dates: start: 201908, end: 20200204
  20. ONDANSETRON [Concomitant]
     Active Substance: ONDANSETRON
     Dosage: 4 MG, QD
     Route: 048
     Dates: start: 20191230, end: 20200107
  21. PRIMPERAN [Concomitant]
     Active Substance: METOCLOPRAMIDE HYDROCHLORIDE
     Indication: Vomiting
     Dosage: 10 MG, QD
     Route: 042
     Dates: start: 20191212
  22. ALLOPURINOL [Concomitant]
     Active Substance: ALLOPURINOL
     Indication: Hyperuricaemia
     Dosage: 100 MG, QD
     Route: 048
     Dates: start: 201909
  23. ENOXAPARIN [Concomitant]
     Active Substance: ENOXAPARIN
     Dosage: UNK
  24. PYRIDOXINE HYDROCHLORIDE\THIAMINE HYDROCHLORIDE [Concomitant]
     Active Substance: PYRIDOXINE HYDROCHLORIDE\THIAMINE HYDROCHLORIDE
     Dosage: 1 DF, QD
     Route: 048
     Dates: start: 201901
  25. DEXTROSE [Concomitant]
     Active Substance: DEXTROSE

REACTIONS (1)
  - Renal failure [Recovered/Resolved]

NARRATIVE: CASE EVENT DATE: 20200114
